FAERS Safety Report 9186276 (Version 1)
Quarter: 2013Q1

REPORT INFORMATION
  Report Type: Report from Study
  Country: FR (occurrence: FR)
  Receive Date: 20130325
  Receipt Date: 20130325
  Transmission Date: 20140127
  Serious: Yes (Death)
  Sender: FDA-Public Use
  Company Number: FR-GLAXOSMITHKLINE-B0875905A

PATIENT
  Age: 57 Year
  Sex: Male
  Weight: 73 kg

DRUGS (7)
  1. ZANAMIVIR [Suspect]
     Indication: H1N1 INFLUENZA
     Route: 042
     Dates: start: 20130221, end: 20130224
  2. VFEND [Concomitant]
     Indication: ASPERGILLUS INFECTION
     Dosage: 200MG TWICE PER DAY
     Route: 050
     Dates: start: 20130212, end: 20130224
  3. SOLUMEDROL [Concomitant]
     Indication: HEART TRANSPLANT
     Dosage: 25MG PER DAY
     Route: 042
     Dates: start: 20130205, end: 20130224
  4. CELLCEPT [Concomitant]
     Indication: HEART TRANSPLANT
     Dosage: 250MG TWICE PER DAY
     Route: 042
     Dates: start: 20130205, end: 20130224
  5. TAMIFLU [Concomitant]
     Indication: INFLUENZA
     Dosage: 75MG TWICE PER DAY
  6. CYCLOSPORIN [Concomitant]
     Dates: end: 20130219
  7. PROGRAFT [Concomitant]

REACTIONS (4)
  - Gastrointestinal haemorrhage [Fatal]
  - Shock haemorrhagic [Fatal]
  - Multi-organ failure [Fatal]
  - Peptic ulcer [Fatal]
